FAERS Safety Report 23064079 (Version 1)
Quarter: 2023Q4

REPORT INFORMATION
  Report Type: Report from Study
  Country: CA (occurrence: CA)
  Receive Date: 20231013
  Receipt Date: 20231013
  Transmission Date: 20240110
  Serious: Yes (Other)
  Sender: FDA-Public Use
  Company Number: CA-JNJFOC-20230951003

PATIENT
  Age: 38 Year
  Sex: Male
  Weight: 75 kg

DRUGS (1)
  1. REMICADE [Suspect]
     Active Substance: INFLIXIMAB
     Indication: Crohn^s disease
     Dosage: ON 10-OCT-2023, RECEIVED 41TH INFLIXIMAB, RECOMBINANT INFUSION OF 300 MG AND PARTIAL HARVEY-BRADSHAW
     Route: 042
     Dates: start: 20171124

REACTIONS (6)
  - Haematochezia [Unknown]
  - COVID-19 [Not Recovered/Not Resolved]
  - General physical health deterioration [Unknown]
  - Diarrhoea [Unknown]
  - Frequent bowel movements [Unknown]
  - Inappropriate schedule of product administration [Unknown]

NARRATIVE: CASE EVENT DATE: 20230907
